FAERS Safety Report 9751514 (Version 1)
Quarter: 2013Q4

REPORT INFORMATION
  Report Type: Spontaneous
  Country: US (occurrence: US)
  Receive Date: 20131212
  Receipt Date: 20131212
  Transmission Date: 20140711
  Serious: No
  Sender: FDA-Public Use
  Company Number: US-PURDUE-USA-2013-0100368

PATIENT
  Age: 42 Year
  Sex: Female

DRUGS (1)
  1. DILAUDID TABLET [Suspect]
     Indication: BACK PAIN
     Dosage: UNK
     Route: 048
     Dates: start: 2011, end: 2011

REACTIONS (3)
  - Euphoric mood [Recovered/Resolved]
  - Drug effect decreased [Recovered/Resolved]
  - Inadequate analgesia [Recovered/Resolved]
